FAERS Safety Report 7005535-3 (Version None)
Quarter: 2010Q3

REPORT INFORMATION
  Report Type: 
  Country: None (occurrence: None)
  Receive Date: 20100921
  Receipt Date: 20100914
  Transmission Date: 20110219
  Serious: Yes (Hospitalization)
  Sender: FDA-Public Use
  Company Number: B0674363A

PATIENT
  Sex: Male

DRUGS (2)
  1. ALLI [Suspect]
     Dosage: 180MG PER DAY
     Route: 048
  2. PENTASA [Concomitant]

REACTIONS (1)
  - COLITIS ULCERATIVE [None]
